FAERS Safety Report 7034051-8 (Version None)
Quarter: 2010Q4

REPORT INFORMATION
  Report Type: 
  Country: None (occurrence: None)
  Receive Date: 20101006
  Receipt Date: 20100927
  Transmission Date: 20110411
  Serious: Yes (Life-Threatening, Hospitalization)
  Sender: FDA-Public Use
  Company Number: 013797

PATIENT
  Age: 24 Year
  Sex: Female

DRUGS (6)
  1. VIMPAT [Suspect]
     Indication: EPILEPSY
     Dosage: (100 MG BID ORAL)
     Route: 048
  2. PREGABALIN [Concomitant]
  3. DESMOPRESSIN ACETATE [Concomitant]
  4. LANSOPRAZOLE [Concomitant]
  5. ZOPICLONE [Concomitant]
  6. ESCITALOPRAM [Concomitant]

REACTIONS (5)
  - CALCULUS URETERIC [None]
  - CONDITION AGGRAVATED [None]
  - CONVULSION [None]
  - HYDRONEPHROSIS [None]
  - NEPHROLITHIASIS [None]
